FAERS Safety Report 6499771-2 (Version None)
Quarter: 2009Q4

REPORT INFORMATION
  Report Type: 
  Country: None (occurrence: None)
  Receive Date: 20091214
  Receipt Date: 20091130
  Transmission Date: 20100525
  Serious: Yes (Hospitalization)
  Sender: FDA-Public Use
  Company Number: 2009SP003188

PATIENT
  Age: 61 Year
  Sex: Female

DRUGS (7)
  1. XOPENEX [Suspect]
     Dosage: ;INHALATION ;INHALATION ;Q6H; INHALATION
     Dates: start: 20090101
  2. XOPENEX [Suspect]
     Dosage: ;INHALATION ;INHALATION ;Q6H; INHALATION
     Dates: start: 20091101
  3. SPIRIVA [Concomitant]
  4. OXYGEN [Concomitant]
  5. XANAX [Concomitant]
  6. PROZAC [Concomitant]
  7. ALBUTEROL [Concomitant]

REACTIONS (11)
  - CHRONIC OBSTRUCTIVE PULMONARY DISEASE [None]
  - COMPUTERISED TOMOGRAM THORAX ABNORMAL [None]
  - CONDITION AGGRAVATED [None]
  - ECONOMIC PROBLEM [None]
  - LYMPHADENOPATHY MEDIASTINAL [None]
  - PRODUCTIVE COUGH [None]
  - PYREXIA [None]
  - RHONCHI [None]
  - SPUTUM DISCOLOURED [None]
  - TREATMENT NONCOMPLIANCE [None]
  - WHEEZING [None]
